FAERS Safety Report 6620967-0 (Version None)
Quarter: 2010Q1

REPORT INFORMATION
  Report Type: 
  Country: None (occurrence: None)
  Receive Date: 20100308
  Receipt Date: 20100308
  Transmission Date: 20100710
  Serious: Yes (Hospitalization)
  Sender: FDA-Public Use
  Company Number: None

PATIENT
  Age: 73 Year
  Sex: Male
  Weight: 78.4 kg

DRUGS (2)
  1. NAFCILLIN [Suspect]
     Indication: ARTHRITIS INFECTIVE
     Dosage: 2 GM OTHER IV
     Route: 042
     Dates: start: 20100105, end: 20100110
  2. NAFCILLIN [Suspect]
     Indication: HIP FRACTURE
     Dosage: 2 GM OTHER IV
     Route: 042
     Dates: start: 20100105, end: 20100110

REACTIONS (3)
  - NEPHRITIS [None]
  - RENAL FAILURE ACUTE [None]
  - SEPTIC SHOCK [None]
